FAERS Safety Report 22620991 (Version 1)
Quarter: 2023Q2

REPORT INFORMATION
  Report Type: Spontaneous
  Country: DE (occurrence: DE)
  Receive Date: 20230620
  Receipt Date: 20230620
  Transmission Date: 20230722
  Serious: Yes (Other)
  Sender: FDA-Public Use
  Company Number: DE-BoehringerIngelheim-2023-BI-243840

PATIENT
  Age: 60 Year
  Sex: Male

DRUGS (2)
  1. NINTEDANIB [Suspect]
     Active Substance: NINTEDANIB
     Indication: Non-small cell lung cancer
     Dates: start: 20131009, end: 20140122
  2. EVEROLIMUS [Suspect]
     Active Substance: EVEROLIMUS
     Indication: Non-small cell lung cancer
     Dates: start: 20131023, end: 20140122

REACTIONS (2)
  - Malignant neoplasm progression [Unknown]
  - Depression [Unknown]

NARRATIVE: CASE EVENT DATE: 20140101
